FAERS Safety Report 19527444 (Version 1)
Quarter: 2021Q3

REPORT INFORMATION
  Report Type: Spontaneous
  Country: US (occurrence: US)
  Receive Date: 20210713
  Receipt Date: 20210713
  Transmission Date: 20211014
  Serious: Yes (Disabling)
  Sender: FDA-Public Use
  Company Number: None

PATIENT
  Age: 60 Year
  Sex: Female
  Weight: 75.15 kg

DRUGS (10)
  1. AMLODIPINE [Concomitant]
     Active Substance: AMLODIPINE BESYLATE
  2. LISINOPRIL. [Concomitant]
     Active Substance: LISINOPRIL
  3. DULOXETINE. [Concomitant]
     Active Substance: DULOXETINE
  4. DIAZEPAM. [Concomitant]
     Active Substance: DIAZEPAM
  5. TYLENOL [Concomitant]
     Active Substance: ACETAMINOPHEN
  6. BENADRYL [Concomitant]
     Active Substance: DIPHENHYDRAMINE HYDROCHLORIDE
  7. VITAMIN B12, C, E [Concomitant]
  8. HYDROXYCHLOROQUINE SULFATE 200MG [Suspect]
     Active Substance: HYDROXYCHLOROQUINE SULFATE
     Indication: RHEUMATOID ARTHRITIS
     Dosage: ?          QUANTITY:2 TABLET(S);?
     Route: 048
     Dates: start: 20190101, end: 20210501
  9. ASPERCREME NOS [Concomitant]
     Active Substance: MENTHOL\TROLAMINE SALICYLATE
  10. ZINC. [Concomitant]
     Active Substance: ZINC

REACTIONS (4)
  - Retinal tear [None]
  - Eye pain [None]
  - Retinal detachment [None]
  - Visual impairment [None]

NARRATIVE: CASE EVENT DATE: 20210101
